FAERS Safety Report 17756403 (Version 1)
Quarter: 2020Q2

REPORT INFORMATION
  Report Type: Spontaneous
  Country: FR (occurrence: FR)
  Receive Date: 20200507
  Receipt Date: 20200507
  Transmission Date: 20200714
  Serious: Yes (Hospitalization, Other)
  Sender: FDA-Public Use
  Company Number: FR-CADILA HEALTHCARE LIMITED-FR-ZYDUS-022438

PATIENT

DRUGS (4)
  1. TACROLIMUS. [Suspect]
     Active Substance: TACROLIMUS
     Indication: IMMUNOSUPPRESSANT DRUG THERAPY
     Dosage: SERUM TROUGH LEVELS BETWEEN 5 AND 6 UG/L ()
     Route: 065
  2. MYCOPHENOLATE MOFETIL. [Suspect]
     Active Substance: MYCOPHENOLATE MOFETIL
     Indication: LUNG TRANSPLANT
     Dosage: 1000 MILLIGRAM,1000 MG, BID,(INTERVAL :1 DAYS)
     Route: 065
  3. TACROLIMUS. [Suspect]
     Active Substance: TACROLIMUS
     Indication: LUNG TRANSPLANT
     Dosage: SERUM TROUGH LEVESL BETWEEN 7 AND 8 UG/L ()
     Route: 065
  4. MYCOPHENOLATE MOFETIL. [Suspect]
     Active Substance: MYCOPHENOLATE MOFETIL
     Indication: IMMUNOSUPPRESSANT DRUG THERAPY
     Dosage: 1000 MILLIGRAM,(INTERVAL :1 DAYS)

REACTIONS (12)
  - Dysdiadochokinesis [Unknown]
  - Gait disturbance [Unknown]
  - Dysmetria [Unknown]
  - Product use in unapproved indication [Unknown]
  - Aphasia [Unknown]
  - Lung transplant rejection [Unknown]
  - Ataxia [Unknown]
  - Lymphopenia [Unknown]
  - Transient aphasia [Unknown]
  - Headache [Unknown]
  - Brain abscess [Unknown]
  - Phaeohyphomycosis [Unknown]
